FAERS Safety Report 8511256-8 (Version None)
Quarter: 2012Q3

REPORT INFORMATION
  Report Type: 
  Country: None (occurrence: None)
  Receive Date: 20120716
  Receipt Date: 20120710
  Transmission Date: 20120928
  Serious: Yes (Other)
  Sender: FDA-Public Use
  Company Number: US-JNJFOC-20120705833

PATIENT
  Age: 72 Year
  Sex: Male
  Weight: 83.92 kg

DRUGS (3)
  1. UNKNOWN MEDICATION [Concomitant]
     Route: 065
  2. MINOXIDIL [Suspect]
     Route: 061
  3. MINOXIDIL [Suspect]
     Indication: ALOPECIA
     Dosage: 2 SQUIRTS ON SCALP
     Route: 061
     Dates: start: 20120101, end: 20120401

REACTIONS (3)
  - CONJUNCTIVITIS [None]
  - VISUAL ACUITY REDUCED [None]
  - INTRAOCULAR PRESSURE INCREASED [None]
